FAERS Safety Report 5878872-3 (Version None)
Quarter: 2008Q3

REPORT INFORMATION
  Report Type: 
  Country: None (occurrence: None)
  Receive Date: 20080910
  Receipt Date: 20080829
  Transmission Date: 20090109
  Serious: No
  Sender: FDA-Public Use
  Company Number: SPI200800441

PATIENT
  Age: 52 Year
  Sex: Female

DRUGS (3)
  1. AMITIZA [Suspect]
     Indication: CONSTIPATION
     Dosage: 24MCG, BID, ORAL
     Route: 048
     Dates: start: 20080715, end: 20080802
  2. CALCIUM SUPPLEMENT [Concomitant]
  3. MULTIVITAMIN [Concomitant]

REACTIONS (2)
  - CHEST DISCOMFORT [None]
  - CHEST PAIN [None]
